FAERS Safety Report 8135752-0 (Version None)
Quarter: 2012Q1

REPORT INFORMATION
  Report Type: 
  Country: None (occurrence: None)
  Receive Date: 20120214
  Receipt Date: 20120204
  Transmission Date: 20120608
  Serious: Yes (Other)
  Sender: FDA-Public Use
  Company Number: JP-BRISTOL-MYERS SQUIBB COMPANY-16242703

PATIENT
  Age: 37 Year
  Sex: Female
  Weight: 72 kg

DRUGS (4)
  1. DEPAKENE [Concomitant]
     Dosage: 15SEP11-04OCT11;DEPAKENE-R TABLET,05OCT11-30NOV11;DEPAKENE ORAL POWDER
     Route: 048
     Dates: start: 20110915, end: 20111130
  2. ABILIFY [Suspect]
     Indication: SCHIZOPHRENIA
     Dosage: 0.1%,QAM,28OCT11-30OCT11;3DAYS,31OCT11-30NOV11;31DAYS,DOSE INCREASED TO 18ML/DAY ON 31OCT11
     Route: 048
     Dates: start: 20111028, end: 20111130
  3. ABILIFY [Suspect]
     Indication: SCHIZOAFFECTIVE DISORDER
     Dosage: 0.1%,QAM,28OCT11-30OCT11;3DAYS,31OCT11-30NOV11;31DAYS,DOSE INCREASED TO 18ML/DAY ON 31OCT11
     Route: 048
     Dates: start: 20111028, end: 20111130
  4. RISPERIDONE [Suspect]
     Indication: SCHIZOAFFECTIVE DISORDER
     Route: 048
     Dates: start: 20111017, end: 20111029

REACTIONS (3)
  - NORMAL NEWBORN [None]
  - PREMATURE LABOUR [None]
  - PREGNANCY [None]
